FAERS Safety Report 4895094-3 (Version None)
Quarter: 2006Q1

REPORT INFORMATION
  Report Type: 
  Country: None (occurrence: None)
  Receive Date: 20060130
  Receipt Date: 20051217
  Transmission Date: 20060701
  Serious: Yes (Hospitalization)
  Sender: FDA-Public Use
  Company Number: PHHO2005DE19681

PATIENT
  Age: 73 Year
  Sex: Male
  Weight: 93 kg

DRUGS (1)
  1. SPP100 +/- AMLDPINE VS HCTZ +/- AMLDPINE [Suspect]
     Indication: ESSENTIAL HYPERTENSION
     Dosage: 25 MG / DAY
     Route: 048
     Dates: start: 20050628

REACTIONS (6)
  - DIABETIC COMPLICATION [None]
  - DIPLOPIA [None]
  - DISEASE PROGRESSION [None]
  - ULTRASOUND SCAN ABNORMAL [None]
  - VITH NERVE DISORDER [None]
  - VITH NERVE PARALYSIS [None]
